FAERS Safety Report 20654190 (Version 1)
Quarter: 2022Q1

REPORT INFORMATION
  Report Type: Spontaneous
  Country: ES (occurrence: ES)
  Receive Date: 20220330
  Receipt Date: 20220330
  Transmission Date: 20220424
  Serious: Yes (Hospitalization)
  Sender: FDA-Public Use
  Company Number: ES-MYLANLABS-2022M1023832

PATIENT
  Age: 43 Year

DRUGS (1)
  1. FENOFIBRATE [Suspect]
     Active Substance: FENOFIBRATE
     Indication: Hypertriglyceridaemia
     Dosage: 145 MILLIGRAM, QD, 145 MG/24H
     Route: 065

REACTIONS (3)
  - Hepatotoxicity [Recovered/Resolved]
  - Pulmonary toxicity [Recovered/Resolved]
  - Eosinophilia [Unknown]
